FAERS Safety Report 10035355 (Version 1)
Quarter: 2014Q1

REPORT INFORMATION
  Report Type: Spontaneous
  Country: US (occurrence: None)
  Receive Date: 20140306
  Receipt Date: 20140306
  Transmission Date: 20141002
  Serious: Yes (Other)
  Sender: FDA-Public Use
  Company Number: 163-21880-13062547

PATIENT
  Age: 76 Year
  Sex: Male

DRUGS (10)
  1. REVLIMID [Suspect]
     Indication: MYELODYSPLASTIC SYNDROME
     Dosage: 5 MG, 28 IN 28 D, PO  05/22/2013-06/10/2013 THERAPY DATES
     Dates: start: 20130522, end: 20130610
  2. ADVIL (IBUPROFEN) [Concomitant]
  3. ALIGN (BIFIDOBACTERIUM INFANTIS) [Concomitant]
  4. ALLOPURINOL [Concomitant]
  5. ATENOLOL [Concomitant]
  6. CRESTOR (ROSUVASTATIN) [Concomitant]
  7. CYANOCOBALIN [Concomitant]
  8. FLOMAX (TAMSULOSIN HYDROCHLORIDE) [Concomitant]
  9. PACERONE (AMIODARONE HYDROCHLORIDE) [Concomitant]
  10. AMIODARONE [Concomitant]

REACTIONS (1)
  - Thrombocytopenia [None]
